FAERS Safety Report 25039689 (Version 2)
Quarter: 2025Q1

REPORT INFORMATION
  Report Type: Spontaneous
  Country: US (occurrence: US)
  Receive Date: 20250305
  Receipt Date: 20250310
  Transmission Date: 20250409
  Serious: Yes (Hospitalization, Other)
  Sender: BRISTOL-MYERS SQUIBB COMPANY
  Company Number: US-BRISTOL-MYERS SQUIBB COMPANY-2025-031649

PATIENT
  Age: 76 Year
  Sex: Female
  Weight: 60.51 kg

DRUGS (1)
  1. REVLIMID [Suspect]
     Active Substance: LENALIDOMIDE
     Indication: Plasma cell myeloma
     Dosage: FREQ: 1 CAPSULE DAILY FOR 21 DAYS, THEN 7 DAYS OFF; 3 WKS ON/1 WK OFF
     Route: 048
     Dates: start: 20240601

REACTIONS (4)
  - Pneumonia [Unknown]
  - Neutropenia [Unknown]
  - Respiratory symptom [Unknown]
  - Upper gastrointestinal haemorrhage [Unknown]
